FAERS Safety Report 7786358-4 (Version None)
Quarter: 2011Q3

REPORT INFORMATION
  Report Type: 
  Country: None (occurrence: None)
  Receive Date: 20110929
  Receipt Date: 20110919
  Transmission Date: 20111222
  Serious: Yes (Hospitalization)
  Sender: FDA-Public Use
  Company Number: US-JNJFOC-20091207247

PATIENT
  Sex: Female
  Weight: 8.29 kg

DRUGS (11)
  1. INFLIXIMAB [Suspect]
     Indication: CROHN'S DISEASE
     Route: 042
     Dates: start: 20090905
  2. PREVACID [Concomitant]
  3. CLOTRIMAZOLE [Concomitant]
  4. ANTIBIOTICS [Concomitant]
     Indication: INFLAMMATORY BOWEL DISEASE
  5. METHOTREXATE [Concomitant]
  6. VANCOMYCIN [Concomitant]
  7. ELIDEL [Concomitant]
     Route: 061
  8. MICONAZOLE [Concomitant]
  9. NYSTATIN [Concomitant]
  10. CYCLOPHOSPHAMIDE [Concomitant]
  11. FOLIC ACID [Concomitant]

REACTIONS (1)
  - WEIGHT DECREASED [None]
